FAERS Safety Report 5148689-6 (Version None)
Quarter: 2006Q4

REPORT INFORMATION
  Report Type: 
  Country: None (occurrence: None)
  Receive Date: 20060918
  Receipt Date: 20060505
  Transmission Date: 20070319
  Serious: Yes (Hospitalization)
  Sender: FDA-Public Use
  Company Number: US-JNJFOC-20060402960

PATIENT
  Age: 29 Year
  Sex: Male
  Weight: 62.1428 kg

DRUGS (4)
  1. TOPAMAX [Suspect]
     Indication: EPILEPSY
     Dosage: 100 MG, 2 IN 1 DAY, ORAL
     Route: 048
     Dates: start: 20051001, end: 20060403
  2. GABAPENTIN [Concomitant]
  3. PHENOBARBITAL TAB [Concomitant]
  4. LAMOTRIGINE [Concomitant]

REACTIONS (2)
  - NEPHROLITHIASIS [None]
  - OSTEOPOROTIC FRACTURE [None]
